FAERS Safety Report 21228746 (Version 2)
Quarter: 2022Q3

REPORT INFORMATION
  Report Type: Spontaneous
  Country: US (occurrence: US)
  Receive Date: 20220818
  Receipt Date: 20220916
  Transmission Date: 20221027
  Serious: No
  Sender: FDA-Public Use
  Company Number: US-BRISTOL-MYERS SQUIBB COMPANY-2022-092204

PATIENT
  Age: 82 Year
  Sex: Male

DRUGS (2)
  1. REVLIMID [Suspect]
     Active Substance: LENALIDOMIDE
     Indication: Plasma cell myeloma
     Dosage: DAILY ON DAYS 1-21 OF EACH 35 DAY CYCLE
     Route: 048
  2. REVLIMID [Suspect]
     Active Substance: LENALIDOMIDE
     Dosage: 1 DF : 1 CAPSULE?FREQ : DAILY ON DAYS 1-21 OF EACH 35 DAY CYCLE
     Route: 048
     Dates: start: 20220712

REACTIONS (4)
  - Feeling abnormal [Unknown]
  - Peripheral swelling [Unknown]
  - Cardiac murmur [Unknown]
  - Off label use [Unknown]
